FAERS Safety Report 6300479-4 (Version None)
Quarter: 2009Q3

REPORT INFORMATION
  Report Type: 
  Country: None (occurrence: None)
  Receive Date: 20090806
  Receipt Date: 20081011
  Transmission Date: 20100115
  Serious: No
  Sender: FDA-Public Use
  Company Number: US-ABBOTT-08P-163-0481401-00

PATIENT
  Sex: Male
  Weight: 77.18 kg

DRUGS (4)
  1. DEPAKOTE ER [Suspect]
     Indication: BIPOLAR I DISORDER
     Route: 048
     Dates: start: 19970101
  2. ZIPRASIDONE HYDROCHLORIDE [Concomitant]
     Indication: AFFECTIVE DISORDER
     Route: 048
     Dates: start: 20050101
  3. LAMOTRIGINE [Concomitant]
     Indication: BIPOLAR I DISORDER
     Route: 048
     Dates: start: 20060101
  4. VENLAFAXINE HCL [Concomitant]
     Indication: DEPRESSION
     Route: 048
     Dates: start: 20060101

REACTIONS (2)
  - AMNESIA [None]
  - HYPERTENSION [None]
